FAERS Safety Report 7702454-1 (Version None)
Quarter: 2011Q3

REPORT INFORMATION
  Report Type: 
  Country: None (occurrence: None)
  Receive Date: 20110823
  Receipt Date: 20110817
  Transmission Date: 20111222
  Serious: Yes (Hospitalization)
  Sender: FDA-Public Use
  Company Number: DE-RANBAXY-2009RR-20452

PATIENT
  Age: 63 Year
  Sex: Male
  Weight: 80 kg

DRUGS (5)
  1. SIMAVASTATIN [Suspect]
     Indication: CAROTID ARTERY STENOSIS
     Dosage: 20 MG, QD
     Route: 048
     Dates: start: 20080519, end: 20081014
  2. BISOPROLOL FUMARATE [Concomitant]
     Indication: HYPERTENSION
     Dosage: 2.5 MG, QD
     Route: 048
     Dates: start: 20060901
  3. JOHANNISKRAUT-KAPSELN CT [Suspect]
     Indication: GENERALISED ANXIETY DISORDER
     Dosage: 300 MG, BID
     Route: 048
     Dates: start: 20080911, end: 20081014
  4. ASPIRIN [Suspect]
     Indication: CAROTID ARTERY STENOSIS
     Dosage: 100 MG, QD
     Route: 048
     Dates: start: 20080519, end: 20081010
  5. INSIDON CIBA-GEIGY [Suspect]
     Indication: GENERALISED ANXIETY DISORDER
     Dosage: 50 MG, QD
     Route: 048
     Dates: start: 20070901, end: 20081014

REACTIONS (1)
  - HEPATIC ENZYME INCREASED [None]
